FAERS Safety Report 13080766 (Version 1)
Quarter: 2017Q1

REPORT INFORMATION
  Report Type: Report from Study
  Country: ES (occurrence: ES)
  Receive Date: 20170103
  Receipt Date: 20170103
  Transmission Date: 20170428
  Serious: Yes (Death, Hospitalization)
  Sender: FDA-Public Use
  Company Number: ES-PFIZER INC-2016604018

PATIENT
  Age: 91 Year
  Sex: Female

DRUGS (11)
  1. CLEXANE [Concomitant]
     Active Substance: ENOXAPARIN SODIUM
     Dosage: 1-0-0
     Route: 058
     Dates: start: 20160805
  2. ALDACTONE [Suspect]
     Active Substance: SPIRONOLACTONE
     Indication: HYPERTENSION
     Dosage: 1-0-0
     Route: 048
     Dates: start: 20141218
  3. LACTULOSE. [Concomitant]
     Active Substance: LACTULOSE
     Dosage: 1-1-1
     Route: 048
     Dates: start: 20160620
  4. FUROSEMIDE. [Concomitant]
     Active Substance: FUROSEMIDE
     Indication: HYPERTENSION
     Dosage: 1-1/2-0
     Route: 048
     Dates: start: 20141218
  5. DIGOXIN. [Concomitant]
     Active Substance: DIGOXIN
     Indication: ATRIAL FIBRILLATION
     Dosage: 5 DF, WEEKLY
     Route: 048
     Dates: start: 20160112
  6. OMEPRAZOLE. [Concomitant]
     Active Substance: OMEPRAZOLE
     Dosage: 1-0-0
     Route: 048
     Dates: start: 20141218
  7. RELVAR ELLIPTA [Concomitant]
     Active Substance: FLUTICASONE FUROATE\VILANTEROL TRIFENATATE
     Dosage: 1-0-0
     Route: 055
     Dates: start: 20160210
  8. TARDYFERON [Concomitant]
     Active Substance: FERROUS SULFATE
     Dosage: 1-0-0
     Route: 048
     Dates: start: 20160902
  9. CARVEDILOL. [Interacting]
     Active Substance: CARVEDILOL
     Indication: ATRIAL FIBRILLATION
     Dosage: 0-0-1/2
     Route: 048
     Dates: start: 20141218
  10. ALLOPURINOL. [Concomitant]
     Active Substance: ALLOPURINOL
     Indication: HYPERURICAEMIA
     Dosage: 1-0-0
     Route: 048
     Dates: start: 20150429
  11. INCRUSE ELLIPTA [Concomitant]
     Active Substance: UMECLIDINIUM BROMIDE
     Dosage: 1-0-0
     Route: 055
     Dates: start: 20160210

REACTIONS (6)
  - Drug interaction [Not Recovered/Not Resolved]
  - Cardio-respiratory arrest [Fatal]
  - Hepatic encephalopathy [Unknown]
  - Hyperkalaemia [Not Recovered/Not Resolved]
  - Acute kidney injury [Unknown]
  - Hepatic encephalopathy [Unknown]

NARRATIVE: CASE EVENT DATE: 2016
